FAERS Safety Report 6785259-8 (Version None)
Quarter: 2010Q2

REPORT INFORMATION
  Report Type: 
  Country: None (occurrence: None)
  Receive Date: 20100623
  Receipt Date: 20100621
  Transmission Date: 20101027
  Serious: Yes (Other)
  Sender: FDA-Public Use
  Company Number: US-ASTRAZENECA-2010SE28942

PATIENT
  Age: 54 Year
  Sex: Female

DRUGS (26)
  1. SEROQUEL [Suspect]
     Route: 048
     Dates: start: 20010111
  2. PRAVACHOL [Concomitant]
     Dates: start: 20010103
  3. CELEXA [Concomitant]
     Dates: start: 20010103
  4. DAYPRO [Concomitant]
     Dates: start: 20010103
  5. PREVACID [Concomitant]
     Dates: start: 20010103
  6. PROPOXY NAP AND APA [Concomitant]
     Dates: start: 20010103
  7. METOCLOPRAMIDE [Concomitant]
     Dates: start: 20010105
  8. DOCUSATE SOD [Concomitant]
     Dates: start: 20010105
  9. FUROSEMIDE [Concomitant]
     Dates: start: 20010110
  10. DIAZEPAM [Concomitant]
     Dates: start: 20010111
  11. LEVAQUIN [Concomitant]
     Dates: start: 20010124
  12. METHYLPREDNISOLONE ACETATE [Concomitant]
     Dates: start: 20010124
  13. CYCLOBENZAPRINE [Concomitant]
     Dates: start: 20010207
  14. QUININE SULFATE [Concomitant]
     Dates: start: 20010207
  15. ZETIA [Concomitant]
     Route: 048
     Dates: start: 20060408
  16. ESTRACE [Concomitant]
     Route: 048
     Dates: start: 20010207
  17. PROTONIX [Concomitant]
     Dosage: 40 MG PO Q AC BREAKFAST AN HS
     Route: 048
     Dates: start: 20060408
  18. NEXIUM [Concomitant]
     Dosage: 40 MG PO Q AC BREAKFAST AN HS
     Route: 048
     Dates: start: 20060408
  19. ZANAFLEX [Concomitant]
     Route: 048
     Dates: start: 20060408
  20. LYRICA [Concomitant]
     Route: 048
     Dates: start: 20060408
  21. LORTAB [Concomitant]
     Route: 048
     Dates: start: 20060408
  22. KLONOPIN [Concomitant]
     Route: 048
     Dates: start: 20060408
  23. FAMVIR [Concomitant]
     Route: 048
     Dates: start: 20060408
  24. NICOTROL [Concomitant]
     Dosage: 1 Q 2 HOURS PRN
     Dates: start: 20060408
  25. POTASSIUM CHLORIDE [Concomitant]
     Route: 048
     Dates: start: 20010110
  26. LASIX [Concomitant]
     Route: 048
     Dates: start: 20060408

REACTIONS (21)
  - ABDOMINAL PAIN [None]
  - ASTHMA [None]
  - BRONCHITIS CHRONIC [None]
  - CARDIOVASCULAR DISORDER [None]
  - CHOLECYSTITIS [None]
  - CHRONIC OBSTRUCTIVE PULMONARY DISEASE [None]
  - DEPRESSION [None]
  - FIBROMYALGIA [None]
  - GASTROOESOPHAGEAL REFLUX DISEASE [None]
  - HIATUS HERNIA [None]
  - HYPERLIPIDAEMIA [None]
  - HYPERTENSION [None]
  - HYPOALBUMINAEMIA [None]
  - HYPOKALAEMIA [None]
  - HYPOPROTEINAEMIA [None]
  - MIGRAINE [None]
  - NEUROPATHY PERIPHERAL [None]
  - PEPTIC ULCER [None]
  - THYROID DISORDER [None]
  - TYPE 2 DIABETES MELLITUS [None]
  - URINARY TRACT INFECTION [None]
